FAERS Safety Report 6222927-0 (Version None)
Quarter: 2009Q2

REPORT INFORMATION
  Report Type: 
  Country: None (occurrence: None)
  Receive Date: 20090609
  Receipt Date: 20090603
  Transmission Date: 20091009
  Serious: Yes (Hospitalization)
  Sender: FDA-Public Use
  Company Number: 2009SP012164

PATIENT
  Sex: Male

DRUGS (1)
  1. PEG-INTRON [Suspect]
     Indication: DRUG USE FOR UNKNOWN INDICATION
     Dosage: ; SC, ; PO

REACTIONS (5)
  - HEADACHE [None]
  - PYREXIA [None]
  - SWELLING [None]
  - TONSILLAR DISORDER [None]
  - TONSILLAR INFLAMMATION [None]
